FAERS Safety Report 17718116 (Version 1)
Quarter: 2020Q2

REPORT INFORMATION
  Report Type: Spontaneous
  Country: US (occurrence: US)
  Receive Date: 20200428
  Receipt Date: 20200428
  Transmission Date: 20200714
  Serious: Yes (Life-Threatening, Hospitalization, Disabling)
  Sender: FDA-Public Use
  Company Number: None

PATIENT
  Age: 6 Year
  Sex: Male
  Weight: 32.4 kg

DRUGS (15)
  1. DIURIL [Concomitant]
     Active Substance: CHLOROTHIAZIDE
  2. CIPRO [Suspect]
     Active Substance: CIPROFLOXACIN HYDROCHLORIDE
     Indication: INFECTION
     Dosage: ?          QUANTITY:2 SYRINGE;OTHER ROUTE:GTUBE?
     Dates: start: 20191031, end: 20191113
  3. PROPRANOLOL [Concomitant]
     Active Substance: PROPRANOLOL HYDROCHLORIDE
  4. CLONAZEOPAN [Concomitant]
  5. CALCIUM CARBONATE. [Concomitant]
     Active Substance: CALCIUM CARBONATE
  6. FLONASE [Concomitant]
     Active Substance: FLUTICASONE PROPIONATE
  7. CETERIZINE [Concomitant]
     Active Substance: CETIRIZINE HYDROCHLORIDE
  8. ALBUTEROL. [Concomitant]
     Active Substance: ALBUTEROL
  9. LIQUID TEARS [Concomitant]
     Active Substance: CARBOXYMETHYLCELLULOSE
  10. BIOTIN MOUTH WASH [Concomitant]
  11. LACTOBACILLUS [Concomitant]
     Active Substance: LACTOBACILLUS ACIDOPHILUS
  12. MULTIVITAMIN [Concomitant]
     Active Substance: VITAMINS
  13. CEPHALEXIN. [Concomitant]
     Active Substance: CEPHALEXIN
  14. KEPPRA [Concomitant]
     Active Substance: LEVETIRACETAM
  15. FLUTICASONE. [Concomitant]
     Active Substance: FLUTICASONE

REACTIONS (10)
  - Diarrhoea [None]
  - Thrombosis [None]
  - Dialysis [None]
  - Seizure [None]
  - Cardiac failure [None]
  - Pleural effusion [None]
  - Urine output decreased [None]
  - Multiple organ dysfunction syndrome [None]
  - Hypotension [None]
  - Shock [None]

NARRATIVE: CASE EVENT DATE: 20200105
